FAERS Safety Report 22322270 (Version 1)
Quarter: 2023Q2

REPORT INFORMATION
  Report Type: Spontaneous
  Country: GB (occurrence: GB)
  Receive Date: 20230516
  Receipt Date: 20230516
  Transmission Date: 20230722
  Serious: Yes (Disabling)
  Sender: FDA-Public Use
  Company Number: None

PATIENT
  Sex: Female

DRUGS (1)
  1. AMOXICILLIN [Suspect]
     Active Substance: AMOXICILLIN
     Indication: Lower respiratory tract infection
     Dosage: PATIENT TOOK SEVEN CAPSULES IN TOTAL

REACTIONS (3)
  - Cough [Recovered/Resolved]
  - Diaphragmatic spasm [Unknown]
  - Dyspnoea [Unknown]
